FAERS Safety Report 12978821 (Version 1)
Quarter: 2016Q4

REPORT INFORMATION
  Report Type: Report from Study
  Country: US (occurrence: US)
  Receive Date: 20161128
  Receipt Date: 20161128
  Transmission Date: 20170207
  Serious: Yes (Other)
  Sender: FDA-Public Use
  Company Number: US-JNJFOC-20160515206

PATIENT
  Age: 79 Year
  Sex: Male

DRUGS (8)
  1. IMBRUVICA [Suspect]
     Active Substance: IBRUTINIB
     Indication: CHRONIC LYMPHOCYTIC LEUKAEMIA
     Route: 048
     Dates: start: 2016
  2. IMBRUVICA [Suspect]
     Active Substance: IBRUTINIB
     Indication: CHRONIC LYMPHOCYTIC LEUKAEMIA
     Route: 048
     Dates: start: 20160425, end: 2016
  3. ASA [Concomitant]
     Active Substance: ASPIRIN
  4. ATORVASTATIN [Concomitant]
     Active Substance: ATORVASTATIN
  5. METAMUCIL [Concomitant]
     Active Substance: PLANTAGO SEED
  6. OMEPRAZOLE. [Concomitant]
     Active Substance: OMEPRAZOLE
  7. CENTRUM SILVER [Concomitant]
     Active Substance: MINERALS\VITAMINS
  8. TAMSULOSIN [Concomitant]
     Active Substance: TAMSULOSIN

REACTIONS (5)
  - Hernia [Unknown]
  - Arthralgia [Not Recovered/Not Resolved]
  - Laceration [Unknown]
  - Large intestine polyp [Unknown]
  - Coagulation time prolonged [Unknown]

NARRATIVE: CASE EVENT DATE: 2016
